FAERS Safety Report 4894747-0 (Version None)
Quarter: 2006Q1

REPORT INFORMATION
  Report Type: 
  Country: None (occurrence: None)
  Receive Date: 20060130
  Receipt Date: 20060120
  Transmission Date: 20060701
  Serious: Yes (Hospitalization, Other)
  Sender: FDA-Public Use
  Company Number: US-JNJFOC-20060104936

PATIENT
  Age: 40 Year
  Sex: Female

DRUGS (3)
  1. INFLIXIMAB [Suspect]
     Indication: CROHN'S DISEASE
     Dosage: RECEIVED ONE DOSE
  2. METHOTREXATE [Concomitant]
     Indication: ASTHMA
  3. GLUCOCORTICOIDS [Concomitant]
     Indication: ASTHMA

REACTIONS (1)
  - ASPERGILLOSIS [None]
